FAERS Safety Report 8824642 (Version 2)
Quarter: 2012Q4

REPORT INFORMATION
  Report Type: 
  Country: CA (occurrence: CA)
  Receive Date: 20121004
  Receipt Date: 20121022
  Transmission Date: 20130627
  Serious: Yes (Hospitalization, Other)
  Sender: FDA-Public Use
  Company Number: PHHY2012CA072451

PATIENT
  Age: 84 None
  Sex: Male

DRUGS (2)
  1. EXJADE [Suspect]
     Indication: MYELODYSPLASTIC SYNDROME
     Dosage: 30 mg/kg, daily
     Route: 048
     Dates: start: 201207, end: 20120823
  2. EXJADE [Suspect]
     Indication: HAEMOCHROMATOSIS
     Route: 048

REACTIONS (6)
  - Drug hypersensitivity [Unknown]
  - Chills [Unknown]
  - White blood cell count increased [Unknown]
  - Diarrhoea [Unknown]
  - Pyrexia [Unknown]
  - Haemoglobin decreased [Unknown]
